FAERS Safety Report 6702683-X (Version None)
Quarter: 2010Q2

REPORT INFORMATION
  Report Type: 
  Country: None (occurrence: None)
  Receive Date: 20100429
  Receipt Date: 20100421
  Transmission Date: 20101027
  Serious: No
  Sender: FDA-Public Use
  Company Number: US-BAXTER-2010BH009331

PATIENT
  Age: 39 Year
  Sex: Male

DRUGS (6)
  1. DIANEAL [Suspect]
     Indication: PERITONEAL DIALYSIS
     Route: 033
     Dates: start: 20100401
  2. DIANEAL [Suspect]
     Indication: RENAL FAILURE CHRONIC
     Route: 033
     Dates: start: 20100401
  3. DIANEAL [Suspect]
     Route: 033
     Dates: start: 20091028, end: 20100401
  4. DIANEAL [Suspect]
     Route: 033
     Dates: start: 20091028, end: 20100401
  5. DIANEAL [Suspect]
     Indication: PERITONEAL DIALYSIS
     Route: 033
     Dates: start: 20100401, end: 20100401
  6. INSULIN [Concomitant]
     Indication: DIABETES MELLITUS
     Route: 065

REACTIONS (2)
  - ABDOMINAL DISCOMFORT [None]
  - ABDOMINAL PAIN [None]
